FAERS Safety Report 9789641 (Version 2)
Quarter: 2014Q1

REPORT INFORMATION
  Report Type: Spontaneous
  Country: DE (occurrence: DE)
  Receive Date: 20131231
  Receipt Date: 20140116
  Transmission Date: 20141002
  Serious: Yes (Death, Hospitalization)
  Sender: FDA-Public Use
  Company Number: DE-ACTELION-A-CH2013-93034

PATIENT
  Age: 70 Year
  Sex: Female
  Weight: 46 kg

DRUGS (10)
  1. TRACLEER [Suspect]
     Indication: PULMONARY ARTERIAL HYPERTENSION
     Dosage: 62.5 MG, BID
     Route: 048
     Dates: start: 201206, end: 20131112
  2. AMIODARON [Concomitant]
     Dosage: 200 MG, QD
  3. AMLODIPIN [Concomitant]
     Dosage: 5 MG, BID
     Route: 048
  4. TORASEMID [Concomitant]
     Dosage: 10 MG, BID
  5. SILDENAFIL [Concomitant]
     Dosage: 25 MG, TID
     Route: 048
  6. PANTOPRAZOL [Concomitant]
     Dosage: 40 MG, QD
  7. ERYTHROPOETIN [Concomitant]
     Dosage: 3000 IE/ML, UNK
  8. ZOLPIDEM [Concomitant]
     Dosage: 10 MG, OD
  9. PHENPROCOUMON [Concomitant]
     Dosage: UNK, PRN
  10. METAMIZOL [Concomitant]
     Dosage: 30 UNK, PRN

REACTIONS (19)
  - Death [Fatal]
  - Cardiac failure [Unknown]
  - Pulmonary congestion [Unknown]
  - Pleural effusion [Unknown]
  - Dyspnoea [Unknown]
  - Renal failure acute [Unknown]
  - Blood creatinine increased [Unknown]
  - Blood uric acid increased [Unknown]
  - Renal impairment [Unknown]
  - Gastrointestinal haemorrhage [Unknown]
  - Melaena [Unknown]
  - Haemoglobin decreased [Unknown]
  - Haematocrit decreased [Unknown]
  - International normalised ratio increased [Unknown]
  - Packed red blood cell transfusion [Unknown]
  - Pneumonia [Recovered/Resolved]
  - Pyrexia [Recovered/Resolved]
  - Urinary tract infection [Unknown]
  - Nitrite urine present [Unknown]
